FAERS Safety Report 9278197 (Version 1)
Quarter: 2013Q2

REPORT INFORMATION
  Report Type: Spontaneous
  Country: JP (occurrence: JP)
  Receive Date: 20130508
  Receipt Date: 20130508
  Transmission Date: 20140414
  Serious: Yes (Hospitalization)
  Sender: FDA-Public Use
  Company Number: JP-B.I. PHARMACEUTICALS,INC./RIDGEFIELD-2013-BI-11810NB

PATIENT
  Sex: 0

DRUGS (3)
  1. BI-SIFROL [Suspect]
     Indication: PARKINSON^S DISEASE
     Dosage: 1.5 MG
     Route: 048
  2. MADOPAR [Concomitant]
     Indication: PARKINSON^S DISEASE
     Dosage: 6DF
     Route: 048
  3. FP [Concomitant]
     Indication: PARKINSON^S DISEASE
     Dosage: 1DF
     Route: 048

REACTIONS (2)
  - Fall [Unknown]
  - Fracture [Unknown]
